FAERS Safety Report 17218191 (Version 1)
Quarter: 2019Q4

REPORT INFORMATION
  Report Type: Spontaneous
  Country: SE (occurrence: SE)
  Receive Date: 20191231
  Receipt Date: 20191231
  Transmission Date: 20200122
  Serious: Yes (Hospitalization)
  Sender: FDA-Public Use
  Company Number: SE-TEVA-2019-SE-1158597

PATIENT
  Age: 46 Year
  Sex: Female

DRUGS (5)
  1. OXASCAND [Suspect]
     Active Substance: OXAZEPAM
     Dosage: 50 MG
     Route: 048
     Dates: start: 20180421, end: 20180421
  2. IMOVANE [Suspect]
     Active Substance: ZOPICLONE
     Dosage: 150 MG
     Route: 048
     Dates: start: 20180421, end: 20180421
  3. ALPOXEN [Suspect]
     Active Substance: NAPROXEN
     Dosage: 250MG
     Route: 048
     Dates: start: 20180421, end: 20180421
  4. QUETIAPIN DEPOT [Suspect]
     Active Substance: QUETIAPINE
     Dosage: 500 MG
     Route: 048
     Dates: start: 20180421, end: 20180421
  5. PROPAVAN [Suspect]
     Active Substance: PROPIOMAZINE
     Dosage: 500 MG
     Route: 048
     Dates: start: 20180421, end: 20180421

REACTIONS (3)
  - Fatigue [Unknown]
  - Intentional self-injury [Unknown]
  - Intentional overdose [Unknown]

NARRATIVE: CASE EVENT DATE: 20180421
